FAERS Safety Report 16830684 (Version 1)
Quarter: 2019Q3

REPORT INFORMATION
  Report Type: Spontaneous
  Country: GB (occurrence: GB)
  Receive Date: 20190920
  Receipt Date: 20190920
  Transmission Date: 20191005
  Serious: Yes (Other)
  Sender: FDA-Public Use
  Company Number: GB-TEVA-2019-GB-1109874

PATIENT
  Age: 20 Year
  Sex: Female
  Weight: 73 kg

DRUGS (3)
  1. LOESTRIN NOS [Concomitant]
     Active Substance: ETHINYL ESTRADIOL\NORETHINDRONE ACETATE
     Dosage: FOR 21 DAYS THEN 7 DAY BREAK, 1 DOSAGE FORMS
     Dates: start: 20180730, end: 20190816
  2. CLARITHROMYCIN. [Suspect]
     Active Substance: CLARITHROMYCIN
     Dosage: FOR 7 DAYS, 1 DOSAGE FORM
     Dates: start: 20190816
  3. GEDAREL [Concomitant]
     Dosage: FOR 21 DAYS THEN HAVE 7 PILL FREE DAYS, 1 DOSAGE FORM
     Dates: start: 20190715

REACTIONS (1)
  - Diarrhoea haemorrhagic [Recovered/Resolved]

NARRATIVE: CASE EVENT DATE: 20190821
